FAERS Safety Report 8571215-6 (Version None)
Quarter: 2012Q3

REPORT INFORMATION
  Report Type: 
  Country: None (occurrence: None)
  Receive Date: 20120730
  Receipt Date: 20120730
  Transmission Date: 20120928
  Serious: Yes (Hospitalization)
  Sender: FDA-Public Use
  Company Number: None

PATIENT
  Weight: 91 kg

DRUGS (9)
  1. MAGIC MOUTHWASH [Concomitant]
  2. OMEPRAZOLE [Concomitant]
  3. LIPITOR [Concomitant]
  4. AMBIEN [Concomitant]
  5. LEVAQUIN [Concomitant]
  6. CISPLATIN [Suspect]
  7. ETOPOSIDE [Suspect]
  8. COMPAZINE [Concomitant]
  9. SYNTHROID [Concomitant]

REACTIONS (3)
  - CHILLS [None]
  - COUGH [None]
  - FEBRILE NEUTROPENIA [None]
